FAERS Safety Report 12121834 (Version 1)
Quarter: 2016Q1

REPORT INFORMATION
  Report Type: Spontaneous
  Country: US (occurrence: US)
  Receive Date: 20160226
  Receipt Date: 20160226
  Transmission Date: 20160526
  Serious: No
  Sender: FDA-Public Use
  Company Number: US-ALLERGAN-1524100US

PATIENT
  Age: 69 Year
  Sex: Female

DRUGS (2)
  1. REFRESH P.M. [Suspect]
     Active Substance: MINERAL OIL\PETROLATUM
     Indication: DRY EYE
     Dosage: UNK UNK, QHS
     Route: 061
     Dates: start: 2015
  2. REFRESH OPTIVE [Suspect]
     Active Substance: CARBOXYMETHYLCELLULOSE SODIUM\GLYCERIN
     Indication: DRY EYE
     Dosage: 8-10 VIALS A DAY OR EVERY 2 HOURS
     Route: 047
     Dates: start: 2015

REACTIONS (2)
  - Ocular hyperaemia [Not Recovered/Not Resolved]
  - Foreign body in eye [Recovered/Resolved]
